FAERS Safety Report 7209129-6 (Version None)
Quarter: 2011Q1

REPORT INFORMATION
  Report Type: 
  Country: None (occurrence: None)
  Receive Date: 20110103
  Receipt Date: 20110103
  Transmission Date: 20110831
  Serious: Yes (Hospitalization)
  Sender: FDA-Public Use
  Company Number: None

PATIENT
  Age: 65 Year
  Sex: Male
  Weight: 196 kg

DRUGS (2)
  1. LISINOPRIL [Suspect]
     Indication: HYPERTENSION
     Dosage: 10 MG EVERY DAY PO
     Route: 048
     Dates: start: 20100420, end: 20100812
  2. ATENOLOL [Suspect]
     Indication: HYPERTENSION
     Dosage: 100 MG BID PO
     Route: 048
     Dates: start: 20100130, end: 20100810

REACTIONS (6)
  - MUSCULAR WEAKNESS [None]
  - CHEST DISCOMFORT [None]
  - DYSPNOEA [None]
  - GAIT DISTURBANCE [None]
  - BRADYCARDIA [None]
  - HYPERKALAEMIA [None]
